FAERS Safety Report 8925268 (Version 2)
Quarter: 2012Q4

REPORT INFORMATION
  Report Type: Report from Study
  Country: ES (occurrence: ES)
  Receive Date: 20121126
  Receipt Date: 20121219
  Transmission Date: 20130627
  Serious: Yes (Death, Hospitalization)
  Sender: FDA-Public Use
  Company Number: ES-ROCHE-1157198

PATIENT
  Age: 63 Year
  Sex: Male

DRUGS (12)
  1. RIBAVIRIN [Suspect]
     Indication: HEPATITIS C
     Route: 065
     Dates: start: 20120204
  2. RIBAVIRIN [Suspect]
     Route: 065
  3. PEG-INTERFERON ALFA 2A [Suspect]
     Indication: HEPATITIS C
     Route: 065
     Dates: start: 20120204
  4. TELAPREVIR [Suspect]
     Indication: HEPATITIS C
     Route: 065
  5. AZATHIOPRINE [Concomitant]
     Route: 065
  6. ACETAMINOPHEN [Concomitant]
     Route: 065
  7. PREDNISONE [Concomitant]
     Route: 065
  8. ISONIAZID [Concomitant]
     Indication: TUBERCULOSIS
     Route: 065
  9. ETHAMBUTOL [Concomitant]
     Indication: TUBERCULOSIS
     Route: 065
  10. LEVOFLOXACIN [Concomitant]
     Indication: TUBERCULOSIS
     Route: 065
  11. CORTICOIDS [Concomitant]
  12. CYCLOSPORINE [Concomitant]

REACTIONS (1)
  - Histiocytosis haematophagic [Fatal]
